FAERS Safety Report 18773084 (Version 2)
Quarter: 2021Q1

REPORT INFORMATION
  Report Type: Report from Study
  Country: US (occurrence: US)
  Receive Date: 20210122
  Receipt Date: 20210122
  Transmission Date: 20210419
  Serious: Yes (Death)
  Sender: FDA-Public Use
  Company Number: US-PFIZER INC-2021030094

PATIENT

DRUGS (3)
  1. DOCETAXEL. [Suspect]
     Active Substance: DOCETAXEL
     Indication: NON-SMALL CELL LUNG CANCER
     Dosage: 30 MG/M2, WEEKLY (AS A 30 MINS.GIVEN ON DAYS 1, 8, AND 15 EVERY 28 DAYS)
     Route: 042
  2. DEXAMETHASONE. [Concomitant]
     Active Substance: DEXAMETHASONE
     Indication: PROPHYLAXIS
     Dosage: 8 MG, 2X/DAY (EVERY 12 HOURS FOR 3 DOSES)
     Route: 048
  3. GEMCITABINE HYDROCHLORIDE. [Suspect]
     Active Substance: GEMCITABINE HYDROCHLORIDE
     Indication: NON-SMALL CELL LUNG CANCER
     Dosage: 800 MG/M2, WEEKLY (GIVEN ON DAYS 1, 8, AND 15 EVERY 28 DAYS)
     Route: 042

REACTIONS (2)
  - Respiratory failure [Fatal]
  - Pneumonitis [Fatal]
